FAERS Safety Report 14586132 (Version 2)
Quarter: 2018Q1

REPORT INFORMATION
  Report Type: Spontaneous
  Country: US (occurrence: US)
  Receive Date: 20180301
  Receipt Date: 20180305
  Transmission Date: 20180509
  Serious: No
  Sender: FDA-Public Use
  Company Number: US-BAYER-2018-034922

PATIENT
  Age: 71 Year
  Sex: Male
  Weight: 86 kg

DRUGS (2)
  1. ZOLOFT [Concomitant]
     Active Substance: SERTRALINE HYDROCHLORIDE
     Dosage: UNK
  2. MIRALAX [Suspect]
     Active Substance: POLYETHYLENE GLYCOL 3350
     Indication: CONSTIPATION PROPHYLAXIS
     Dosage: 1/2-1 DOSE DAILY DOSE
     Route: 048

REACTIONS (5)
  - Product use in unapproved indication [Unknown]
  - Underdose [Unknown]
  - Incorrect drug administration duration [Unknown]
  - Product use issue [Unknown]
  - Tooth injury [Not Recovered/Not Resolved]

NARRATIVE: CASE EVENT DATE: 20180220
